FAERS Safety Report 18778843 (Version 1)
Quarter: 2021Q1

REPORT INFORMATION
  Report Type: Report from Study
  Country: AU (occurrence: AU)
  Receive Date: 20210124
  Receipt Date: 20210124
  Transmission Date: 20210419
  Serious: Yes (Life-Threatening)
  Sender: FDA-Public Use
  Company Number: AU-BEH-2021127361

PATIENT
  Age: 46 Year
  Sex: Male
  Weight: 112 kg

DRUGS (8)
  1. BERINERT [Suspect]
     Active Substance: HUMAN C1-ESTERASE INHIBITOR
     Indication: HEREDITARY ANGIOEDEMA
     Dosage: 5000 INTERNATIONAL UNIT, BIW
     Route: 058
     Dates: start: 20201217, end: 202101
  2. DANAZOL. [Concomitant]
     Active Substance: DANAZOL
  3. ARTANE [Concomitant]
     Active Substance: TRIHEXYPHENIDYL HYDROCHLORIDE
  4. ICATIBANT [Concomitant]
     Active Substance: ICATIBANT ACETATE
  5. BERINERT [Suspect]
     Active Substance: HUMAN C1-ESTERASE INHIBITOR
     Indication: PROPHYLAXIS
  6. CLOPIXOL [ZUCLOPENTHIXOL DECANOATE] [Concomitant]
     Active Substance: ZUCLOPENTHIXOL DECANOATE
  7. BERINERT [Suspect]
     Active Substance: HUMAN C1-ESTERASE INHIBITOR
     Indication: HEREDITARY ANGIOEDEMA
     Dosage: 5000 INTERNATIONAL UNIT, BIW
     Route: 058
     Dates: start: 20201217, end: 202101
  8. BERINERT [Suspect]
     Active Substance: HUMAN C1-ESTERASE INHIBITOR
     Indication: PROPHYLAXIS

REACTIONS (7)
  - Muscle spasms [Unknown]
  - Anaphylactic reaction [Unknown]
  - Asthenia [Unknown]
  - Eye discharge [Unknown]
  - Hereditary angioedema [Unknown]
  - Eye disorder [Unknown]
  - Contusion [Unknown]

NARRATIVE: CASE EVENT DATE: 20201217
